FAERS Safety Report 4571842-7 (Version None)
Quarter: 2005Q1

REPORT INFORMATION
  Report Type: 
  Country: None (occurrence: None)
  Receive Date: 20050207
  Receipt Date: 20041222
  Transmission Date: 20050727
  Serious: Yes (Hospitalization, Other)
  Sender: FDA-Public Use
  Company Number: JP-MERCK-0412USA03017

PATIENT
  Age: 22 Week

DRUGS (2)
  1. INDOCIN I.V. [Suspect]
     Indication: PATENT DUCTUS ARTERIOSUS
     Route: 042
  2. CATECHOLAMINE [Concomitant]
     Indication: CARDIAC FAILURE
     Route: 065

REACTIONS (4)
  - CARDIAC FAILURE [None]
  - CONCOMITANT DISEASE PROGRESSION [None]
  - RENAL IMPAIRMENT [None]
  - THERAPY NON-RESPONDER [None]
